FAERS Safety Report 6293091-7 (Version None)
Quarter: 2009Q3

REPORT INFORMATION
  Report Type: 
  Country: None (occurrence: None)
  Receive Date: 20090723
  Receipt Date: 20090717
  Transmission Date: 20100115
  Serious: Yes (Hospitalization)
  Sender: FDA-Public Use
  Company Number: THYM-1000825

PATIENT
  Age: 55 Year
  Sex: Female
  Weight: 62 kg

DRUGS (13)
  1. THYMOGLOBULIN [Suspect]
     Indication: APLASTIC ANAEMIA
     Dosage: 230 MG, QD, INTRAVENOUS
     Route: 042
     Dates: start: 20081008, end: 20081013
  2. CYCLOSPORINE [Concomitant]
  3. FLUCONAZOLE [Concomitant]
  4. OMEPRAZOLE [Concomitant]
  5. ACYCLOVIR [Concomitant]
  6. METOCLOPRAMIDE [Concomitant]
  7. PIPERACILLIN SODIUM AND TAZOBACTAM SODIUM [Concomitant]
  8. TRANEXAMIC ACID (TRANEXAMIC ACID) [Concomitant]
  9. PREDNISOLONE [Concomitant]
  10. GENTAMICIN [Concomitant]
  11. PARACETAMOL (PARACETAMOL, PROMETHAZINE HYDROCHLORIDE) [Concomitant]
  12. CHLORPHENIRAMINE TAB [Concomitant]
  13. HYDROCORTONE [Concomitant]

REACTIONS (8)
  - ALANINE AMINOTRANSFERASE INCREASED [None]
  - BLOOD ALKALINE PHOSPHATASE INCREASED [None]
  - BLOOD BILIRUBIN INCREASED [None]
  - FEBRILE NEUTROPENIA [None]
  - MALAISE [None]
  - PLATELET COUNT DECREASED [None]
  - RASH GENERALISED [None]
  - WHITE BLOOD CELL COUNT DECREASED [None]
